FAERS Safety Report 6348390-7 (Version None)
Quarter: 2009Q3

REPORT INFORMATION
  Report Type: 
  Country: None (occurrence: None)
  Receive Date: 20090911
  Receipt Date: 20070712
  Transmission Date: 20100115
  Serious: Yes (Other)
  Sender: FDA-Public Use
  Company Number: US-ASTRAZENECA-2007UW10967

PATIENT
  Age: 17726 Day
  Sex: Female
  Weight: 80.7 kg

DRUGS (22)
  1. SEROQUEL [Suspect]
     Indication: BIPOLAR DISORDER
     Dosage: 25-200 MG
     Route: 048
     Dates: start: 20010724
  2. SEROQUEL [Suspect]
     Indication: DEPRESSION
     Dosage: 25-200 MG
     Route: 048
     Dates: start: 20010724
  3. SEROQUEL [Suspect]
     Route: 048
     Dates: start: 20040101, end: 20040701
  4. SEROQUEL [Suspect]
     Route: 048
     Dates: start: 20040101, end: 20040701
  5. CELEXA [Concomitant]
     Dosage: 20-40 MG
     Dates: start: 20010318
  6. DIAZEPAM [Concomitant]
     Dosage: 5-10 MG
     Dates: start: 20010522
  7. PROMETHAZINE [Concomitant]
     Dates: start: 20010607
  8. DEPAKOTE ER [Concomitant]
     Dates: start: 20010703
  9. LORAZEPAM [Concomitant]
     Dosage: 0.5-2 MG
     Dates: start: 20010820
  10. RANITIDINE [Concomitant]
     Dates: start: 20010830
  11. NEURONTIN [Concomitant]
     Dates: start: 20010830
  12. ZOCOR [Concomitant]
     Dates: start: 20010905
  13. MECLIZINE [Concomitant]
     Dates: start: 20011112
  14. PRIMIDONE [Concomitant]
     Dates: start: 20020430
  15. XANAX XR [Concomitant]
     Dates: start: 20050221
  16. NAPROXEN [Concomitant]
     Dates: start: 20021230
  17. METFORMIN HCL [Concomitant]
     Dates: start: 20050725
  18. ACTOS [Concomitant]
     Dates: start: 20050725
  19. GEMFIBROZIL [Concomitant]
     Dates: start: 20021015
  20. PAXIL [Concomitant]
     Dates: start: 20020430
  21. VYTORIN [Concomitant]
     Dosage: 10 BY 20
     Dates: start: 20050115
  22. GLYBURIDE [Concomitant]
     Dates: start: 20040917

REACTIONS (3)
  - DIABETES MELLITUS [None]
  - DIABETIC NEUROPATHY [None]
  - TYPE 2 DIABETES MELLITUS [None]
